FAERS Safety Report 10180957 (Version 2)
Quarter: 2014Q2

REPORT INFORMATION
  Report Type: Spontaneous
  Country: US (occurrence: US)
  Receive Date: 20140519
  Receipt Date: 20140519
  Transmission Date: 20141212
  Serious: No
  Sender: FDA-Public Use
  Company Number: US-AMGEN INC.-USASP2013073755

PATIENT
  Age: 81 Year
  Sex: Female
  Weight: 60.32 kg

DRUGS (9)
  1. PROLIA [Suspect]
     Indication: OSTEOPOROSIS
     Dosage: 60 MG, UNK
     Route: 058
     Dates: start: 20130603
  2. ADVAIR [Concomitant]
     Indication: CHRONIC OBSTRUCTIVE PULMONARY DISEASE
     Dosage: UNK UNK, BID 500-50 INHALER
     Route: 065
  3. ZANTAC [Concomitant]
     Indication: GASTROOESOPHAGEAL REFLUX DISEASE
     Dosage: 150 MG, QD
     Route: 048
  4. SPIRIVA [Concomitant]
     Indication: CHRONIC OBSTRUCTIVE PULMONARY DISEASE
     Dosage: 18 MG, QD INHALER
     Route: 065
  5. TYLENOL                            /00020001/ [Concomitant]
     Dosage: UNK UNK, AS NECESSARY
     Route: 048
  6. CALTRATE                           /00944201/ [Concomitant]
     Dosage: UNK UNK, BID
     Route: 048
  7. VITAMIN D3 [Concomitant]
     Dosage: 400 UNK, UNK
     Route: 065
  8. VITAMIN C                          /00008001/ [Concomitant]
     Indication: PROPHYLAXIS
     Dosage: 1000 MG, QD
     Route: 065
  9. CALCIUM [Concomitant]
     Dosage: UNK UNK, BID
     Route: 065

REACTIONS (20)
  - Arthralgia [Recovered/Resolved]
  - Adverse drug reaction [Unknown]
  - Acute sinusitis [Unknown]
  - Fatigue [Unknown]
  - Hyperlipidaemia [Unknown]
  - Hyperglycaemia [Unknown]
  - Blood pressure increased [Unknown]
  - C-reactive protein increased [Unknown]
  - Skin lesion [Unknown]
  - Cholelithiasis [Unknown]
  - Renal cyst [Unknown]
  - Pulmonary mass [Unknown]
  - Serum amyloid A protein increased [Unknown]
  - Pancreatitis [Unknown]
  - Colonoscopy [Unknown]
  - Post procedural infection [Unknown]
  - Diverticulitis [Unknown]
  - Vomiting [Unknown]
  - Diarrhoea [Unknown]
  - Pelvic pain [Unknown]
